FAERS Safety Report 4416271-1 (Version None)
Quarter: 2004Q3

REPORT INFORMATION
  Report Type: 
  Country: None (occurrence: None)
  Receive Date: 20040805
  Receipt Date: 20010501
  Transmission Date: 20050211
  Serious: Yes (Death, Hospitalization)
  Sender: FDA-Public Use
  Company Number: SE-AMGEN-01050105

PATIENT
  Age: 47 Year
  Sex: Female

DRUGS (12)
  1. ENBREL [Suspect]
     Indication: RHEUMATOID ARTHRITIS
     Route: 058
     Dates: start: 20010403
  2. ENBREL [Suspect]
  3. PREDNISOLONE [Concomitant]
  4. DICLOFENAC [Concomitant]
  5. FUROSEMIDE [Concomitant]
  6. OMEPRAZOLE [Concomitant]
  7. WARFARIN SODIUM [Concomitant]
  8. KETOBEMIDONE [Concomitant]
  9. CALCIUM [Concomitant]
  10. POTASSIUM [Concomitant]
  11. IRON [Concomitant]
  12. LACTULOSE [Concomitant]

REACTIONS (6)
  - CULTURE POSITIVE [None]
  - ESCHERICHIA INFECTION [None]
  - PSEUDOMONAS INFECTION [None]
  - SEPSIS [None]
  - STAPHYLOCOCCAL INFECTION [None]
  - STREPTOCOCCAL INFECTION [None]
